FAERS Safety Report 5739887-9 (Version None)
Quarter: 2008Q2

REPORT INFORMATION
  Report Type: 
  Country: None (occurrence: None)
  Receive Date: 20080516
  Receipt Date: 20080508
  Transmission Date: 20081010
  Serious: Yes (Hospitalization)
  Sender: FDA-Public Use
  Company Number: US-JNJFOC-20060601748

PATIENT
  Sex: Female
  Weight: 99.79 kg

DRUGS (6)
  1. ORTHO EVRA [Suspect]
     Indication: DRUG USE FOR UNKNOWN INDICATION
     Route: 062
  2. ASACHOL [Concomitant]
  3. LEXAPRO [Concomitant]
  4. ETODOLAC [Concomitant]
  5. AZATHIOPRINE [Concomitant]
  6. CIPRO [Concomitant]

REACTIONS (2)
  - DEEP VEIN THROMBOSIS [None]
  - PULMONARY EMBOLISM [None]
